FAERS Safety Report 8907373 (Version 2)
Quarter: 2013Q1

REPORT INFORMATION
  Report Type: Spontaneous
  Country: DK (occurrence: AU)
  Receive Date: 20121114
  Receipt Date: 20130204
  Transmission Date: 20140127
  Serious: Yes (Hospitalization)
  Sender: FDA-Public Use
  Company Number: AU-FRI-1000040355

PATIENT
  Age: 81 Year
  Sex: Female
  Weight: 68 kg

DRUGS (9)
  1. LEXAPRO [Suspect]
     Indication: DEPRESSION
     Dosage: 10 MG
     Route: 048
     Dates: start: 20120822, end: 20120827
  2. LASIX [Suspect]
     Indication: CARDIAC FAILURE CONGESTIVE
  3. LOSEC [Concomitant]
     Indication: OESOPHAGEAL DISORDER
  4. BLACKMORES FISH OIL [Concomitant]
  5. COUMADIN [Concomitant]
     Indication: HEART RATE ABNORMAL
  6. GLUCOSAMINE-CHONDROITIN [Concomitant]
  7. LANOXIN [Concomitant]
     Indication: HEART RATE ABNORMAL
  8. PANADOL OSTEO [Concomitant]
  9. VITAMIN B12 NOS [Concomitant]
     Indication: HYPOVITAMINOSIS

REACTIONS (5)
  - Hyponatraemia [Not Recovered/Not Resolved]
  - Urinary retention [Not Recovered/Not Resolved]
  - Abdominal pain [Not Recovered/Not Resolved]
  - Urine output decreased [Not Recovered/Not Resolved]
  - Malaise [Not Recovered/Not Resolved]
